FAERS Safety Report 17704700 (Version 1)
Quarter: 2020Q2

REPORT INFORMATION
  Report Type: Spontaneous
  Country: US (occurrence: US)
  Receive Date: 20200423
  Receipt Date: 20200423
  Transmission Date: 20200714
  Serious: No
  Sender: FDA-Public Use
  Company Number: None

PATIENT
  Sex: Female

DRUGS (13)
  1. LEUPROLIDE 1MG/0.2ML MDV [Suspect]
     Active Substance: LEUPROLIDE
     Indication: INFERTILITY FEMALE
     Route: 058
  2. FOLIC ACID. [Concomitant]
     Active Substance: FOLIC ACID
  3. METRONIDAZOL [Concomitant]
     Active Substance: METRONIDAZOLE
  4. GANIRELIX [Concomitant]
     Active Substance: GANIRELIX
  5. FLUCONAZOLE. [Concomitant]
     Active Substance: FLUCONAZOLE
  6. ISIBLOOM [Concomitant]
     Active Substance: DESOGESTREL\ETHINYL ESTRADIOL
  7. PROGESTERONE. [Concomitant]
     Active Substance: PROGESTERONE
  8. METHYLPRED [Concomitant]
     Active Substance: METHYLPREDNISOLONE
  9. DOXYCYCL HYC [Concomitant]
  10. ENOXAPARIN [Concomitant]
     Active Substance: ENOXAPARIN
  11. LEVOTHYROXIN [Concomitant]
     Active Substance: LEVOTHYROXINE
  12. DIAZEPAM. [Concomitant]
     Active Substance: DIAZEPAM
  13. ESTRADIOL. [Concomitant]
     Active Substance: ESTRADIOL

REACTIONS (1)
  - Injection site pruritus [None]
